FAERS Safety Report 8228678-5 (Version None)
Quarter: 2012Q1

REPORT INFORMATION
  Report Type: 
  Country: None (occurrence: None)
  Receive Date: 20120322
  Receipt Date: 20120314
  Transmission Date: 20120608
  Serious: Yes (Other)
  Sender: FDA-Public Use
  Company Number: BR-SANOFI-AVENTIS-2012SA017660

PATIENT
  Sex: Male
  Weight: 51 kg

DRUGS (10)
  1. LANTUS [Suspect]
     Route: 058
     Dates: start: 20040101
  2. ASPIRIN [Concomitant]
     Route: 048
     Dates: start: 20040101
  3. BRIMONIDINE TARTRATE [Concomitant]
     Indication: GLAUCOMA
     Route: 047
  4. VITAMIN B COMPLEX CAP [Concomitant]
     Indication: VITAMIN SUPPLEMENTATION
     Route: 048
     Dates: start: 20040101
  5. LOSARTAN POTASSIUM [Concomitant]
     Route: 048
     Dates: start: 20070101
  6. PRAVASTATIN [Concomitant]
     Route: 048
     Dates: start: 20040101
  7. CITALOPRAM HYDROBROMIDE [Concomitant]
     Indication: DEPRESSION
     Route: 048
     Dates: start: 20080101
  8. OMEPRAZOLE [Concomitant]
     Indication: GASTRIC DISORDER
     Route: 048
     Dates: start: 20080101
  9. LEVOTHYROXINE SODIUM [Concomitant]
     Route: 048
     Dates: start: 20040101
  10. TIMOLOL MALEATE [Concomitant]
     Indication: GLAUCOMA
     Route: 047

REACTIONS (4)
  - HYPERGLYCAEMIA [None]
  - DEAFNESS UNILATERAL [None]
  - POLLAKIURIA [None]
  - CARDIAC OPERATION [None]
